FAERS Safety Report 9466664 (Version 1)
Quarter: 2013Q3

REPORT INFORMATION
  Report Type: Spontaneous
  Country: US (occurrence: None)
  Receive Date: 20130816
  Receipt Date: 20130816
  Transmission Date: 20140515
  Serious: Yes (Other)
  Sender: FDA-Public Use
  Company Number: None

PATIENT
  Age: 71 Year
  Sex: Female

DRUGS (7)
  1. HORIZANT [Suspect]
     Indication: RESTLESS LEGS SYNDROME
  2. COLACE [Concomitant]
  3. CLONAZEPAM [Concomitant]
  4. HYDROXYZINE HCL [Concomitant]
  5. MIRAPEX [Concomitant]
  6. SERTRALINE [Concomitant]
  7. VALACYCLOVIR [Concomitant]

REACTIONS (4)
  - Dizziness [None]
  - Balance disorder [None]
  - Feeling abnormal [None]
  - Hemiparesis [None]
